FAERS Safety Report 8497298 (Version 3)
Quarter: 2013Q3

REPORT INFORMATION
  Report Type: Spontaneous
  Country: US (occurrence: None)
  Receive Date: 20120327
  Receipt Date: 20130724
  Transmission Date: 20140515
  Serious: Yes (Other)
  Sender: FDA-Public Use
  Company Number: PHHY2011US35232

PATIENT
  Age: 71 Year
  Sex: Female
  Weight: 75.7 kg

DRUGS (10)
  1. GLEEVEC [Suspect]
     Indication: CHRONIC MYELOID LEUKAEMIA
     Dosage: 400 MG, QD, ORAL
     Route: 048
     Dates: start: 20060501
  2. XYZAL [Concomitant]
  3. LIPITOR [Concomitant]
  4. ACCUPRIL [Concomitant]
  5. SYNTHROID [Concomitant]
  6. TOPROL XL [Concomitant]
  7. PREVACID [Concomitant]
  8. LEXAPRO [Concomitant]
  9. OMEGA 3 [Concomitant]
  10. VITAMIN D [Concomitant]

REACTIONS (11)
  - Anaemia [None]
  - Swelling face [None]
  - Alopecia [None]
  - Eye swelling [None]
  - Oedema peripheral [None]
  - Joint swelling [None]
  - Nausea [None]
  - Fluid retention [None]
  - Muscular weakness [None]
  - Pneumonia [None]
  - Muscle spasms [None]
